FAERS Safety Report 8217589-7 (Version None)
Quarter: 2012Q1

REPORT INFORMATION
  Report Type: 
  Country: None (occurrence: None)
  Receive Date: 20120319
  Receipt Date: 20120319
  Transmission Date: 20120608
  Serious: Yes (Other)
  Sender: FDA-Public Use
  Company Number: None

PATIENT
  Sex: Female
  Weight: 108.4 kg

DRUGS (2)
  1. AZATHIOPRINE [Suspect]
     Indication: AUTOIMMUNE HEPATITIS
     Dosage: 75 MG
     Route: 048
     Dates: start: 20080702, end: 20120314
  2. PREDNISONE TAB [Concomitant]

REACTIONS (9)
  - WEIGHT INCREASED [None]
  - DIARRHOEA [None]
  - DISTURBANCE IN ATTENTION [None]
  - ARTHRITIS [None]
  - FATIGUE [None]
  - MAJOR DEPRESSION [None]
  - IMMUNE SYSTEM DISORDER [None]
  - IMPAIRED WORK ABILITY [None]
  - COMMUNICATION DISORDER [None]
